FAERS Safety Report 6370438-4 (Version None)
Quarter: 2009Q3

REPORT INFORMATION
  Report Type: 
  Country: None (occurrence: None)
  Receive Date: 20090923
  Receipt Date: 20090908
  Transmission Date: 20100115
  Serious: Yes (Other)
  Sender: FDA-Public Use
  Company Number: SE-GENENTECH-290638

PATIENT
  Sex: Female

DRUGS (1)
  1. XOLAIR [Suspect]
     Indication: DRUG USE FOR UNKNOWN INDICATION
     Dosage: UNK
     Dates: start: 20090820

REACTIONS (4)
  - BURNING SENSATION [None]
  - ERYTHEMA [None]
  - FEELING ABNORMAL [None]
  - GENERAL PHYSICAL HEALTH DETERIORATION [None]
